FAERS Safety Report 12949695 (Version 1)
Quarter: 2016Q4

REPORT INFORMATION
  Report Type: Spontaneous
  Country: US (occurrence: US)
  Receive Date: 20161117
  Receipt Date: 20161117
  Transmission Date: 20170207
  Serious: No
  Sender: FDA-Public Use
  Company Number: US-BAUSCH-BL-2016-012552

PATIENT
  Age: 88 Year
  Sex: Male
  Weight: 75.36 kg

DRUGS (7)
  1. BLINK [Concomitant]
     Indication: EYE DISORDER
     Dosage: 1 DROP TO BOTH EYES OCCASIONALLY
     Route: 047
     Dates: start: 2015
  2. FUROSEMIDE. [Concomitant]
     Active Substance: FUROSEMIDE
     Indication: PRODUCT USED FOR UNKNOWN INDICATION
     Route: 048
  3. TAMSULOSIN [Concomitant]
     Active Substance: TAMSULOSIN
     Indication: PROSTATIC DISORDER
     Route: 048
  4. LOSARTAN. [Concomitant]
     Active Substance: LOSARTAN
     Indication: PRODUCT USED FOR UNKNOWN INDICATION
     Route: 048
     Dates: start: 2006
  5. LOTEMAX [Suspect]
     Active Substance: LOTEPREDNOL ETABONATE
     Indication: CORNEAL TRANSPLANT
     Dosage: ONE DROP TO THE LEFT EYE EVERY MORNING
     Route: 047
     Dates: start: 201501
  6. PRAVASTATIN. [Concomitant]
     Active Substance: PRAVASTATIN
     Indication: PRODUCT USED FOR UNKNOWN INDICATION
     Route: 048
     Dates: start: 2006
  7. FINASTERIDE. [Concomitant]
     Active Substance: FINASTERIDE
     Indication: PROSTATIC DISORDER
     Route: 048

REACTIONS (3)
  - Off label use [Not Recovered/Not Resolved]
  - Rash erythematous [Not Recovered/Not Resolved]
  - Chronic obstructive pulmonary disease [Not Recovered/Not Resolved]

NARRATIVE: CASE EVENT DATE: 201602
